FAERS Safety Report 9374698 (Version 4)
Quarter: 2018Q2

REPORT INFORMATION
  Report Type: Report from Study
  Country: DE (occurrence: DE)
  Receive Date: 20130628
  Receipt Date: 20180626
  Transmission Date: 20180711
  Serious: Yes (Hospitalization, Other)
  Sender: FDA-Public Use
  Company Number: DE-PFIZER INC-2013156812

PATIENT
  Age: 74 Year
  Sex: Female
  Weight: 85 kg

DRUGS (20)
  1. EXEMESTANE. [Suspect]
     Active Substance: EXEMESTANE
     Indication: BREAST CANCER METASTATIC
     Dosage: 25 MG, 1X/DAY
     Route: 048
     Dates: start: 20130306, end: 20140222
  2. BONDRONAT [Concomitant]
     Active Substance: IBANDRONIC ACID
     Dosage: UNK UNK, QW3
     Dates: start: 20090401
  3. NEUROTRAT S FORTE [Concomitant]
     Dosage: UNK UNK, QD
     Dates: start: 20090401
  4. AFINITOR [Suspect]
     Active Substance: EVEROLIMUS
     Indication: BREAST CANCER METASTATIC
     Dosage: 10 MG, 1X/DAY
     Route: 048
     Dates: start: 20130306, end: 20130512
  5. CARMEN [Concomitant]
     Active Substance: LERCANIDIPINE
     Dosage: UNK
     Dates: start: 20130513
  6. BONDRONAT [Concomitant]
     Active Substance: IBANDRONIC ACID
     Dosage: UNK
     Dates: start: 20090801
  7. EUTHYROX [Concomitant]
     Active Substance: LEVOTHYROXINE SODIUM
     Dosage: 50 MG, QD
     Dates: start: 20100808
  8. VELMETIA [Concomitant]
     Active Substance: METFORMIN\SITAGLIPTIN
     Dosage: 50/1000MG
     Dates: start: 20110301
  9. CALCIGEN D [Concomitant]
     Active Substance: CALCIUM CARBONATE\CHOLECALCIFEROL
     Dosage: UNK UNK, BID
     Dates: start: 20130305
  10. VELMETIA [Concomitant]
     Active Substance: METFORMIN\SITAGLIPTIN
     Dosage: 1 DF, BID
     Dates: start: 20110301
  11. GLIMEPIRIDE. [Concomitant]
     Active Substance: GLIMEPIRIDE
     Dosage: 4 MG, BID
     Dates: start: 20110909, end: 20130411
  12. CETEBE [Concomitant]
     Dosage: 500 MG, BID
     Dates: start: 20130305
  13. DEKRISTOL [Concomitant]
     Active Substance: CHOLECALCIFEROL
     Dosage: UNK UNK, QW
     Dates: start: 20130305
  14. ACTRAPID [Concomitant]
     Active Substance: INSULIN HUMAN
     Dosage: UNK (0-16-5)
     Dates: start: 20130412
  15. AFINITOR [Suspect]
     Active Substance: EVEROLIMUS
     Dosage: 5 MG, 1X/DAY
     Route: 048
     Dates: start: 20130603, end: 20140222
  16. SIMVASTATIN. [Concomitant]
     Active Substance: SIMVASTATIN
     Dosage: 20 MG, QD
     Dates: start: 20110909
  17. DELIX [Concomitant]
     Active Substance: RAMIPRIL
     Dosage: UNK
     Dates: start: 20130513
  18. FERRO ^SANOL^ [Concomitant]
     Dosage: UNK UKN, QD
     Dates: start: 20110909
  19. AFINITOR [Suspect]
     Active Substance: EVEROLIMUS
     Dosage: 5 MG, 1X/DAY
     Route: 048
     Dates: start: 20130604
  20. ORTHOMOL [Concomitant]
     Dosage: UNK UNK, QD
     Dates: start: 20110909

REACTIONS (13)
  - Swollen tongue [Recovered/Resolved]
  - Lymphoedema [Recovered/Resolved]
  - Stomatitis [Recovered/Resolved]
  - Weight decreased [Recovered/Resolved]
  - Pyrexia [Recovered/Resolved]
  - Blood glucose increased [Recovered/Resolved with Sequelae]
  - Allergic oedema [Unknown]
  - Angioedema [Recovered/Resolved]
  - Diarrhoea [Recovered/Resolved]
  - C-reactive protein increased [Recovered/Resolved]
  - Type 2 diabetes mellitus [Recovered/Resolved with Sequelae]
  - Stridor [Recovered/Resolved]
  - General physical health deterioration [Recovered/Resolved]

NARRATIVE: CASE EVENT DATE: 20130404
